FAERS Safety Report 9423037 (Version 1)
Quarter: 2013Q3

REPORT INFORMATION
  Report Type: Spontaneous
  Country: US (occurrence: US)
  Receive Date: 20130726
  Receipt Date: 20130726
  Transmission Date: 20140515
  Serious: Yes (Death)
  Sender: FDA-Public Use
  Company Number: US-GLAXOSMITHKLINE-A1034931A

PATIENT
  Age: 66 Year
  Sex: Female

DRUGS (14)
  1. HYCAMTIN [Suspect]
     Indication: BREAST CANCER
     Dosage: 4.25MG CYCLIC
     Route: 048
     Dates: start: 20130618
  2. MEGACE [Concomitant]
  3. B COMPLEX [Concomitant]
  4. VITAMIN D3 [Concomitant]
  5. ASPIRIN [Concomitant]
  6. ADVAIR DISKUS [Concomitant]
  7. LEVOTHYROXINE [Concomitant]
  8. ZOFRAN [Concomitant]
  9. VALIUM [Concomitant]
  10. ATIVAN [Concomitant]
  11. XANAX [Concomitant]
  12. NEURONTIN [Concomitant]
  13. OXYCODONE [Concomitant]
  14. MS CONTIN [Concomitant]

REACTIONS (1)
  - Death [Fatal]
